FAERS Safety Report 6997284-2 (Version None)
Quarter: 2010Q3

REPORT INFORMATION
  Report Type: 
  Country: None (occurrence: None)
  Receive Date: 20100918
  Receipt Date: 20091007
  Transmission Date: 20110219
  Serious: Yes (Hospitalization)
  Sender: FDA-Public Use
  Company Number: US-WYE-H11474809

PATIENT
  Sex: Female

DRUGS (1)
  1. NORPLANT SYSTEM [Suspect]
     Indication: CONTRACEPTION
     Dosage: 6 CAPSULES
     Route: 058
     Dates: start: 19930101

REACTIONS (2)
  - INCORRECT DRUG ADMINISTRATION DURATION [None]
  - SYSTEMIC LUPUS ERYTHEMATOSUS [None]
